FAERS Safety Report 5943946-5 (Version None)
Quarter: 2008Q4

REPORT INFORMATION
  Report Type: 
  Country: None (occurrence: None)
  Receive Date: 20081106
  Receipt Date: 20081028
  Transmission Date: 20090506
  Serious: Yes (Life-Threatening, Other)
  Sender: FDA-Public Use
  Company Number: GB-ASTRAZENECA-2008GB02046

PATIENT
  Age: 24699 Day
  Sex: Male

DRUGS (10)
  1. QUETIAPINE FUMARATE [Suspect]
     Indication: BIPOLAR DISORDER
     Route: 048
     Dates: start: 20080908, end: 20080908
  2. QUETIAPINE FUMARATE [Suspect]
     Dosage: REGURGITATED SINGLE YELLOW TABLET
     Route: 048
     Dates: start: 20080910, end: 20080910
  3. QUETIAPINE FUMARATE [Suspect]
     Route: 048
     Dates: start: 20080922, end: 20080922
  4. QUETIAPINE FUMARATE [Suspect]
     Dosage: REGURGITATED SINGLE TABLET
     Route: 048
     Dates: start: 20080928, end: 20080928
  5. METFORMIN HCL [Concomitant]
     Indication: TYPE 2 DIABETES MELLITUS
  6. INSULIN [Concomitant]
     Indication: TYPE 2 DIABETES MELLITUS
  7. OMACOR [Concomitant]
  8. OMEPRAZOLE [Concomitant]
  9. EZETROL [Concomitant]
  10. NASAL SPRAY [Concomitant]
     Indication: SINUSITIS

REACTIONS (17)
  - ABASIA [None]
  - ABDOMINAL PAIN UPPER [None]
  - BLOOD GLUCOSE INCREASED [None]
  - BLOOD PRESSURE INCREASED [None]
  - CARDIOVASCULAR DISORDER [None]
  - CONSTIPATION [None]
  - DIZZINESS [None]
  - DRY MOUTH [None]
  - DYSPEPSIA [None]
  - ERECTION INCREASED [None]
  - HALLUCINATION [None]
  - HEADACHE [None]
  - ILL-DEFINED DISORDER [None]
  - INSOMNIA [None]
  - JOINT SWELLING [None]
  - MALAISE [None]
  - PAIN [None]
